FAERS Safety Report 6425913-0 (Version None)
Quarter: 2009Q4

REPORT INFORMATION
  Report Type: 
  Country: None (occurrence: None)
  Receive Date: 20091103
  Receipt Date: 20091029
  Transmission Date: 20100525
  Serious: Yes (Death, Life-Threatening, Hospitalization, Disabling, Other)
  Sender: FDA-Public Use
  Company Number: FR-ABBOTT-07P-056-0427298-00

PATIENT
  Sex: Female

DRUGS (27)
  1. HUMIRA [Suspect]
     Indication: RHEUMATOID ARTHRITIS
     Route: 058
     Dates: start: 20061101, end: 20070424
  2. HUMIRA [Suspect]
     Route: 058
     Dates: start: 20060901, end: 20061101
  3. ETANERCEPT [Suspect]
     Indication: RHEUMATOID ARTHRITIS
     Route: 058
     Dates: start: 20031201, end: 20040601
  4. LEFLUNOMIDE [Suspect]
     Indication: RHEUMATOID ARTHRITIS
     Route: 048
     Dates: start: 20040901
  5. LEFLUNOMIDE [Suspect]
     Route: 048
     Dates: end: 20050601
  6. KINERET [Suspect]
     Indication: RHEUMATOID ARTHRITIS
     Route: 058
     Dates: start: 20051001, end: 20051201
  7. PREDNISONE TAB [Suspect]
     Indication: RHEUMATOID ARTHRITIS
     Route: 048
     Dates: start: 20051101
  8. METHOTREXATE [Suspect]
     Indication: RHEUMATOID ARTHRITIS
     Route: 048
     Dates: start: 19971101, end: 20040101
  9. METHOTREXATE [Suspect]
     Route: 048
     Dates: start: 20040101, end: 20040301
  10. METHOTREXATE [Suspect]
     Route: 048
     Dates: start: 20040301, end: 20040601
  11. METHOTREXATE [Suspect]
     Route: 048
     Dates: start: 20040601, end: 20040901
  12. METHOTREXATE [Suspect]
     Route: 048
     Dates: end: 20050301
  13. ACEBUTOLOL [Concomitant]
     Indication: ESSENTIAL HYPERTENSION
     Dosage: 1/2 TABLET IN THE MORNING, 3/4 TABLET IN THE EVENING
     Route: 048
     Dates: start: 20060101
  14. CLONAZEPAM [Concomitant]
     Indication: DRUG USE FOR UNKNOWN INDICATION
     Route: 048
     Dates: start: 20060101
  15. RAMIPRIL [Concomitant]
     Indication: ESSENTIAL HYPERTENSION
     Route: 048
  16. CALCIUM [Concomitant]
     Indication: OSTEOPOROSIS
     Route: 048
  17. PANTOPRAZOLE [Concomitant]
     Indication: DRUG USE FOR UNKNOWN INDICATION
     Route: 048
     Dates: start: 20060101
  18. ACETYLLEUCINE [Concomitant]
     Indication: DRUG USE FOR UNKNOWN INDICATION
     Route: 048
  19. ACETAMINOPHEN [Concomitant]
     Indication: MUSCULOSKELETAL PAIN
     Route: 050
     Dates: end: 20070607
  20. ACETAMINOPHEN [Concomitant]
     Indication: PAIN
     Route: 048
  21. INSULIN GLARGINE [Concomitant]
     Indication: TYPE 1 DIABETES MELLITUS
     Route: 058
  22. ASPARTE INSULIN [Concomitant]
     Indication: TYPE 1 DIABETES MELLITUS
     Dosage: 3 INJECTIONS PER DAY
     Route: 058
  23. SALAZOPYRINE [Concomitant]
     Indication: DRUG USE FOR UNKNOWN INDICATION
     Dates: start: 19971101, end: 20071201
  24. FUROSEMIDE [Concomitant]
     Indication: DRUG USE FOR UNKNOWN INDICATION
     Route: 048
     Dates: start: 20000101
  25. CORTANCYL [Concomitant]
     Indication: DRUG USE FOR UNKNOWN INDICATION
     Dates: start: 20080604
  26. BONIVA [Concomitant]
     Indication: DRUG USE FOR UNKNOWN INDICATION
     Dates: start: 20080604
  27. VITAMIN D [Concomitant]
     Indication: DRUG USE FOR UNKNOWN INDICATION
     Dates: start: 20080604

REACTIONS (21)
  - ANORECTAL DISORDER [None]
  - ARTERIAL THROMBOSIS [None]
  - ASTHENIA [None]
  - BACTERIAL TEST POSITIVE [None]
  - COMA [None]
  - CONSTIPATION [None]
  - DIABETES MELLITUS INADEQUATE CONTROL [None]
  - DIARRHOEA [None]
  - GASTROINTESTINAL HAEMORRHAGE [None]
  - GASTROINTESTINAL MOTILITY DISORDER [None]
  - GENERAL PHYSICAL HEALTH DETERIORATION [None]
  - HAEMORRHAGE [None]
  - INFLAMMATION [None]
  - METASTASES TO LIVER [None]
  - MICROCYTIC ANAEMIA [None]
  - NUTRITIONAL CONDITION ABNORMAL [None]
  - RECTAL CANCER [None]
  - RECTAL HAEMORRHAGE [None]
  - RECTOSIGMOID CANCER [None]
  - SOMNOLENCE [None]
  - VENOUS THROMBOSIS [None]
